FAERS Safety Report 5276135-0 (Version None)
Quarter: 2007Q2

REPORT INFORMATION
  Report Type: 
  Country: None (occurrence: None)
  Receive Date: 20070326
  Receipt Date: 20070111
  Transmission Date: 20071010
  Serious: Yes (Death, Life-Threatening, Hospitalization)
  Sender: FDA-Public Use
  Company Number: BE-JNJFOC-20060705640

PATIENT
  Sex: Female
  Weight: 54 kg

DRUGS (25)
  1. TMC114 [Suspect]
     Route: 048
  2. TMC114 [Suspect]
     Indication: HIV INFECTION
     Route: 048
  3. NORVIR [Suspect]
     Route: 048
  4. NORVIR [Suspect]
     Indication: ACQUIRED IMMUNODEFICIENCY SYNDROME
     Route: 048
  5. MK0518 [Suspect]
     Route: 048
  6. MK0518 [Suspect]
     Route: 048
  7. MK0518 [Suspect]
     Indication: HIV INFECTION
     Route: 048
  8. FLUCONAZOLE [Suspect]
     Indication: CANDIDIASIS
     Route: 048
  9. CRIXIVAN [Suspect]
     Route: 048
  10. CRIXIVAN [Suspect]
     Indication: ACQUIRED IMMUNODEFICIENCY SYNDROME
     Route: 048
  11. COMBIVIR [Suspect]
     Route: 048
  12. COMBIVIR [Suspect]
     Indication: ACQUIRED IMMUNODEFICIENCY SYNDROME
     Dosage: 150-300 MG BID
     Route: 048
  13. VIREAD [Suspect]
     Route: 048
  14. VIREAD [Suspect]
     Indication: ACQUIRED IMMUNODEFICIENCY SYNDROME
     Route: 048
  15. DARAPRIM [Concomitant]
     Indication: CEREBRAL TOXOPLASMOSIS
     Route: 048
  16. RESCUVOLIN [Concomitant]
     Indication: FOLATE DEFICIENCY
     Route: 048
  17. PANTOPRAZOLE SODIUM [Concomitant]
     Indication: DUODENITIS
     Route: 048
  18. CHOLECALCIFEROL [Concomitant]
     Indication: VITAMIN D DEFICIENCY
     Route: 048
  19. COUNTRY LIFE MAX-B [Concomitant]
     Indication: VITAMIN D DEFICIENCY
     Route: 065
  20. CORTICOSTEROIDS [Concomitant]
     Route: 065
  21. DALACIN [Concomitant]
     Route: 065
  22. LACTULOSE [Concomitant]
     Route: 065
  23. LOPERAMIDE HCL [Concomitant]
     Route: 065
  24. ATTAPULGITUM [Concomitant]
     Route: 065
  25. METRONIDAZOLE [Concomitant]
     Route: 065

REACTIONS (9)
  - ABDOMINAL PAIN UPPER [None]
  - ALANINE AMINOTRANSFERASE INCREASED [None]
  - ASPARTATE AMINOTRANSFERASE INCREASED [None]
  - BRONCHOPNEUMONIA [None]
  - DYSPNOEA [None]
  - HEPATITIS [None]
  - HYPERTHYROIDISM [None]
  - RECTAL HAEMORRHAGE [None]
  - SEPTIC SHOCK [None]
